FAERS Safety Report 9263535 (Version 4)
Quarter: 2013Q3

REPORT INFORMATION
  Report Type: Spontaneous
  Country: US (occurrence: US)
  Receive Date: 20130430
  Receipt Date: 20130705
  Transmission Date: 20140515
  Serious: No
  Sender: FDA-Public Use
  Company Number: US-VERTEX PHARMACEUTICALS INC-2013-005536

PATIENT
  Age: 30 Year
  Sex: Female
  Weight: 52 kg

DRUGS (3)
  1. INCIVEK [Suspect]
     Indication: HEPATITIS C
     Dosage: 750 MG, TID
     Route: 048
     Dates: start: 20130414
  2. PEGASYS [Suspect]
     Indication: HEPATITIS C
     Dosage: 180 ?G, QW
     Route: 058
     Dates: start: 20130414
  3. RIBAVIRIN [Suspect]
     Indication: HEPATITIS C
     Dosage: 400 MG IN AM, 600 MG IN PM
     Route: 048
     Dates: start: 20130414

REACTIONS (6)
  - Dizziness [Not Recovered/Not Resolved]
  - Weight increased [Not Recovered/Not Resolved]
  - Rash papular [Not Recovered/Not Resolved]
  - Rash vesicular [Unknown]
  - Rash pruritic [Not Recovered/Not Resolved]
  - Nausea [Not Recovered/Not Resolved]
